FAERS Safety Report 10663739 (Version 2)
Quarter: 2015Q1

REPORT INFORMATION
  Report Type: Spontaneous
  Country: US (occurrence: US)
  Receive Date: 20141219
  Receipt Date: 20150114
  Transmission Date: 20150720
  Serious: Yes (Hospitalization)
  Sender: FDA-Public Use
  Company Number: US-009507513-1412USA008144

PATIENT
  Age: 64 Year
  Sex: Female

DRUGS (3)
  1. PROLIA [Concomitant]
     Active Substance: DENOSUMAB
     Dosage: UNK
     Dates: start: 201112
  2. FOSAMAX [Suspect]
     Active Substance: ALENDRONATE SODIUM
     Indication: BONE DENSITY DECREASED
     Dosage: UNK, QW, ONCE WEEKLY
     Route: 048
     Dates: start: 2003, end: 2008
  3. ALENDRONATE SODIUM. [Concomitant]
     Active Substance: ALENDRONATE SODIUM
     Indication: BONE DENSITY DECREASED
     Dosage: UNK

REACTIONS (9)
  - Skin infection [Unknown]
  - Dermatitis [Unknown]
  - Stomatitis [Unknown]
  - Eczema [Unknown]
  - Drug ineffective [Unknown]
  - Adverse event [Unknown]
  - Drug hypersensitivity [Unknown]
  - Bone pain [Unknown]
  - Insomnia [Unknown]

NARRATIVE: CASE EVENT DATE: 201211
